FAERS Safety Report 20688530 (Version 1)
Quarter: 2022Q2

REPORT INFORMATION
  Report Type: Other
  Country: US (occurrence: None)
  Receive Date: 20220408
  Receipt Date: 20220408
  Transmission Date: 20220721
  Serious: Yes (Other)
  Sender: FDA-Public Use
  Company Number: US-ROCHE-3062857

PATIENT
  Age: 48 Year
  Sex: Male

DRUGS (7)
  1. BEVACIZUMAB [Suspect]
     Active Substance: BEVACIZUMAB
     Indication: Mucinous adenocarcinoma of appendix
     Dosage: 12 CYCLES
     Route: 065
  2. CAPECITABINE [Suspect]
     Active Substance: CAPECITABINE
     Indication: Mucinous adenocarcinoma of appendix
     Dosage: TWO CYCLES
     Route: 065
  3. FLUOROURACIL [Suspect]
     Active Substance: FLUOROURACIL
     Indication: Mucinous adenocarcinoma of appendix
     Dosage: FIVE CYCLES
     Route: 065
  4. LEUCOVORIN [Suspect]
     Active Substance: LEUCOVORIN
     Indication: Mucinous adenocarcinoma of appendix
     Dosage: FIVE CYCLES
     Route: 065
  5. OXALIPLATIN [Suspect]
     Active Substance: OXALIPLATIN
     Indication: Mucinous adenocarcinoma of appendix
     Route: 065
  6. IRINOTECAN [Suspect]
     Active Substance: IRINOTECAN
     Indication: Mucinous adenocarcinoma of appendix
     Dosage: 12 CYCLES
     Route: 065
  7. MITOMYCIN C [Concomitant]
     Active Substance: MITOMYCIN

REACTIONS (4)
  - Atrial fibrillation [Unknown]
  - Disease progression [Recovering/Resolving]
  - Drug ineffective [Unknown]
  - Neuropathy peripheral [Unknown]
